FAERS Safety Report 5710125-6 (Version None)
Quarter: 2008Q2

REPORT INFORMATION
  Report Type: 
  Country: None (occurrence: None)
  Receive Date: 20080418
  Receipt Date: 20071016
  Transmission Date: 20081010
  Serious: Yes (Other)
  Sender: FDA-Public Use
  Company Number: US-ASTRAZENECA-2007UW23953

PATIENT
  Sex: Female

DRUGS (1)
  1. METOPROLOL SUCCINATE [Suspect]
     Route: 048
     Dates: start: 20071007

REACTIONS (1)
  - DEPRESSION [None]
